FAERS Safety Report 17109330 (Version 1)
Quarter: 2019Q4

REPORT INFORMATION
  Report Type: Spontaneous
  Country: US (occurrence: US)
  Receive Date: 20191204
  Receipt Date: 20191204
  Transmission Date: 20200122
  Serious: Yes (Hospitalization, Other)
  Sender: FDA-Public Use
  Company Number: US-BRISTOL-MYERS SQUIBB COMPANY-BMS-2019-112826

PATIENT
  Sex: Female
  Weight: 47.63 kg

DRUGS (1)
  1. SPRYCEL [Suspect]
     Active Substance: DASATINIB
     Indication: CHRONIC MYELOID LEUKAEMIA
     Dosage: 20 MILLIGRAM, QD
     Route: 048

REACTIONS (6)
  - Pneumonia [Unknown]
  - Eating disorder [Unknown]
  - Off label use [Unknown]
  - Dyspnoea [Unknown]
  - Delirium [Unknown]
  - Treatment noncompliance [Unknown]
